FAERS Safety Report 19488342 (Version 1)
Quarter: 2021Q3

REPORT INFORMATION
  Report Type: Spontaneous
  Country: US (occurrence: US)
  Receive Date: 20210702
  Receipt Date: 20210702
  Transmission Date: 20211014
  Serious: No
  Sender: FDA-Public Use
  Company Number: US-ASTRAZENECA-2021A568805

PATIENT
  Sex: Male
  Weight: 92.5 kg

DRUGS (1)
  1. BRILINTA [Suspect]
     Active Substance: TICAGRELOR
     Indication: MYOCARDIAL INFARCTION
     Route: 048
     Dates: start: 2018, end: 2020

REACTIONS (3)
  - Blood disorder [Unknown]
  - Product use issue [Not Recovered/Not Resolved]
  - Haemorrhage [Recovering/Resolving]
